FAERS Safety Report 9144144 (Version 2)
Quarter: 2013Q3

REPORT INFORMATION
  Report Type: Spontaneous
  Country: US (occurrence: US)
  Receive Date: 20130306
  Receipt Date: 20130920
  Transmission Date: 20140515
  Serious: Yes (Hospitalization, Other)
  Sender: FDA-Public Use
  Company Number: US-ASTRAZENECA-2013SE14349

PATIENT
  Age: 61 Year
  Sex: Female
  Weight: 104.3 kg

DRUGS (4)
  1. NEXIUM [Suspect]
     Indication: GASTROOESOPHAGEAL REFLUX DISEASE
     Route: 048
  2. NEXIUM [Suspect]
     Indication: GASTROOESOPHAGEAL REFLUX DISEASE
     Route: 048
     Dates: start: 201212
  3. NEXIUM [Suspect]
     Indication: GASTROOESOPHAGEAL REFLUX DISEASE
     Route: 048
     Dates: end: 201303
  4. OTHER MEDICATIONS [Concomitant]

REACTIONS (12)
  - Cardiac failure congestive [Unknown]
  - Generalised oedema [Unknown]
  - Renal failure [Unknown]
  - Escherichia infection [Unknown]
  - Body height decreased [Unknown]
  - Weight decreased [Unknown]
  - Vomiting [Unknown]
  - Abdominal discomfort [Unknown]
  - Off label use [Unknown]
  - Drug ineffective [Unknown]
  - Intentional drug misuse [Unknown]
  - Drug dose omission [Unknown]
